FAERS Safety Report 18944164 (Version 1)
Quarter: 2021Q1

REPORT INFORMATION
  Report Type: Spontaneous
  Country: US (occurrence: US)
  Receive Date: 20210225
  Receipt Date: 20210225
  Transmission Date: 20210420
  Serious: Yes (Hospitalization, Disabling)
  Sender: FDA-Public Use
  Company Number: None

PATIENT
  Age: 23 Year
  Sex: Female
  Weight: 103.5 kg

DRUGS (4)
  1. PLAQUENIL [Concomitant]
     Active Substance: HYDROXYCHLOROQUINE SULFATE
  2. METOPROLOL. [Concomitant]
     Active Substance: METOPROLOL
  3. ENOXAPARIN [Concomitant]
     Active Substance: ENOXAPARIN
  4. ENOXAPARIN SODIUM INJECTION [Suspect]
     Active Substance: ENOXAPARIN SODIUM
     Indication: ANTICOAGULANT THERAPY
     Dosage: ?          QUANTITY:1 INJECTION(S);?
     Route: 058
     Dates: start: 20201001, end: 20201025

REACTIONS (4)
  - Recalled product administered [None]
  - Injection site bruising [None]
  - Injection site discolouration [None]
  - Haemorrhage [None]

NARRATIVE: CASE EVENT DATE: 20201011
